FAERS Safety Report 14830746 (Version 1)
Quarter: 2018Q2

REPORT INFORMATION
  Report Type: Spontaneous
  Country: US (occurrence: US)
  Receive Date: 20180430
  Receipt Date: 20180430
  Transmission Date: 20180711
  Serious: No
  Sender: FDA-Public Use
  Company Number: US-SA-2018SA100719

PATIENT
  Age: 65 Year
  Sex: Male

DRUGS (3)
  1. ALIROCUMAB PREFILLED PEN [Suspect]
     Active Substance: ALIROCUMAB
     Indication: LOW DENSITY LIPOPROTEIN
  2. PRALUENT [Suspect]
     Active Substance: ALIROCUMAB
     Indication: LOW DENSITY LIPOPROTEIN
     Route: 058
  3. ATORVASTATIN [Concomitant]
     Active Substance: ATORVASTATIN
     Indication: BLOOD CHOLESTEROL
     Route: 065

REACTIONS (2)
  - Drug ineffective [Unknown]
  - Low density lipoprotein increased [Unknown]
